FAERS Safety Report 7287956-7 (Version None)
Quarter: 2011Q1

REPORT INFORMATION
  Report Type: 
  Country: None (occurrence: None)
  Receive Date: 20110211
  Receipt Date: 20110207
  Transmission Date: 20110831
  Serious: Yes (Other)
  Sender: FDA-Public Use
  Company Number: US-PFIZER INC-2011027783

PATIENT
  Sex: Male

DRUGS (3)
  1. LANTUS [Suspect]
     Dosage: 15 UNITS DAILY
     Route: 058
  2. ACTOS [Suspect]
     Dosage: UNK
  3. GLUCOTROL [Suspect]
     Dosage: UNK

REACTIONS (1)
  - BLOOD GLUCOSE DECREASED [None]
